FAERS Safety Report 6274982-X (Version None)
Quarter: 2009Q3

REPORT INFORMATION
  Report Type: 
  Country: None (occurrence: None)
  Receive Date: 20090721
  Receipt Date: 20090713
  Transmission Date: 20100115
  Serious: Yes (Disabling)
  Sender: FDA-Public Use
  Company Number: AU-ASTRAZENECA-2009SE04608

PATIENT
  Age: 60 Year
  Sex: Female

DRUGS (8)
  1. SEROQUEL [Suspect]
     Indication: AFFECTIVE DISORDER
     Route: 048
  2. VALPRO [Suspect]
     Indication: AFFECTIVE DISORDER
     Route: 048
  3. ACIMAX [Concomitant]
  4. COVERSYL [Concomitant]
  5. LIPITOR [Concomitant]
  6. NEURONTIN [Concomitant]
  7. PANAFCORT [Concomitant]
  8. ROCALTROL [Concomitant]

REACTIONS (3)
  - FAT TISSUE INCREASED [None]
  - FLUID RETENTION [None]
  - WEIGHT INCREASED [None]
